FAERS Safety Report 24662517 (Version 1)
Quarter: 2024Q4

REPORT INFORMATION
  Report Type: Spontaneous
  Country: US (occurrence: None)
  Receive Date: 20241125
  Receipt Date: 20241125
  Transmission Date: 20250115
  Serious: No
  Sender: AXSOME THERAPEUTICS, INC.
  Company Number: US-ARIS GLOBAL-AXS202409-001550

PATIENT
  Age: 48 Year
  Sex: Female
  Weight: 69 kg

DRUGS (2)
  1. AUVELITY [Suspect]
     Active Substance: BUPROPION HYDROCHLORIDE\DEXTROMETHORPHAN HYDROBROMIDE
     Indication: Major depression
     Route: 048
     Dates: start: 20240926
  2. AUVELITY [Suspect]
     Active Substance: BUPROPION HYDROCHLORIDE\DEXTROMETHORPHAN HYDROBROMIDE
     Route: 048

REACTIONS (5)
  - Anxiety [Recovering/Resolving]
  - Drug ineffective [Recovering/Resolving]
  - Product dose confusion [Unknown]
  - Off label use [Unknown]
  - Drug dose titration not performed [Unknown]
